FAERS Safety Report 10005908 (Version 2)
Quarter: 2014Q1

REPORT INFORMATION
  Report Type: Spontaneous
  Country: DE (occurrence: DE)
  Receive Date: 20140313
  Receipt Date: 20140321
  Transmission Date: 20141002
  Serious: Yes (Hospitalization)
  Sender: FDA-Public Use
  Company Number: DE-NOVOPROD-402308

PATIENT
  Age: 52 Year
  Sex: Female
  Weight: 118 kg

DRUGS (9)
  1. VICTOZA [Suspect]
     Indication: TYPE 2 DIABETES MELLITUS
     Dosage: 0.6 MG, QD
     Route: 058
     Dates: start: 20140212, end: 20140215
  2. VICTOZA [Interacting]
     Dosage: 1.2 MG, QD
     Route: 058
     Dates: start: 20140216
  3. METFORMIN [Interacting]
     Indication: TYPE 2 DIABETES MELLITUS
     Dosage: 1000 MG, BID
     Route: 048
     Dates: start: 2011, end: 20140221
  4. METFORMIN [Interacting]
     Dosage: DECREASED DOSE
     Route: 065
  5. LEVEMIR [Concomitant]
     Indication: TYPE 2 DIABETES MELLITUS
     Dosage: 20 U, QD
     Route: 058
     Dates: start: 20130211
  6. VALSARTAN [Concomitant]
     Indication: HYPERTENSION
     Dosage: 160/12.5
     Route: 048
     Dates: start: 2010
  7. AMLODIPIN                          /00972401/ [Concomitant]
     Indication: HYPERTENSION
     Dosage: 10
     Route: 048
     Dates: start: 2010
  8. METOPROLOL [Concomitant]
     Indication: HYPERTENSION
     Dosage: 200 QD
     Route: 048
     Dates: start: 2010
  9. CYMBALTA [Concomitant]
     Indication: DEPRESSION
     Dosage: 60
     Dates: start: 2012

REACTIONS (2)
  - Drug interaction [Recovered/Resolved]
  - Headache [Recovered/Resolved]
